FAERS Safety Report 8191607-7 (Version None)
Quarter: 2012Q1

REPORT INFORMATION
  Report Type: 
  Country: None (occurrence: None)
  Receive Date: 20120307
  Receipt Date: 20120301
  Transmission Date: 20120608
  Serious: Yes (Hospitalization, Other)
  Sender: FDA-Public Use
  Company Number: JP-PFIZER INC-2012040271

PATIENT
  Age: 72 Year
  Sex: Female

DRUGS (5)
  1. MICARDIS [Concomitant]
     Dosage: UNK
  2. AMLODIPINE BESYLATE [Suspect]
     Indication: HYPERTENSION
     Dosage: 10 MG, DAILY
     Route: 048
     Dates: start: 20120124, end: 20120205
  3. LANSOPRAZOLE [Concomitant]
     Dosage: 15 MG DAILY
     Dates: start: 20120124
  4. INSULIN [Concomitant]
     Indication: DIABETES MELLITUS
     Dosage: UNK
  5. AMLODIPINE [Concomitant]
     Dosage: 5 MG, DAILY

REACTIONS (4)
  - PLEURAL EFFUSION [None]
  - PULMONARY CONGESTION [None]
  - GENERALISED OEDEMA [None]
  - HYPOXIA [None]
